FAERS Safety Report 15518966 (Version 1)
Quarter: 2018Q4

REPORT INFORMATION
  Report Type: Report from Study
  Country: US (occurrence: US)
  Receive Date: 20181017
  Receipt Date: 20181017
  Transmission Date: 20190205
  Serious: No
  Sender: FDA-Public Use
  Company Number: US-AMGEN-USASL2018100106

PATIENT
  Age: 71 Year
  Sex: Male
  Weight: 113.3 kg

DRUGS (1)
  1. REPATHA [Suspect]
     Active Substance: EVOLOCUMAB
     Indication: LOW DENSITY LIPOPROTEIN ABNORMAL
     Dosage: 140 MG, Q2WK
     Route: 065
     Dates: start: 201806

REACTIONS (2)
  - Dyspnoea [Not Recovered/Not Resolved]
  - Blood glucose increased [Unknown]

NARRATIVE: CASE EVENT DATE: 2018
